FAERS Safety Report 5267643-7 (Version None)
Quarter: 2007Q1

REPORT INFORMATION
  Report Type: 
  Country: None (occurrence: None)
  Receive Date: 20070316
  Receipt Date: 20070308
  Transmission Date: 20070707
  Serious: Yes (Disabling)
  Sender: FDA-Public Use
  Company Number: JP-MERCK-0703USA02295

PATIENT
  Age: 52 Year
  Sex: Male

DRUGS (3)
  1. PROPECIA [Suspect]
     Indication: MALE PATTERN BALDNESS
     Route: 048
  2. PROPECIA [Suspect]
     Route: 048
     Dates: end: 20070203
  3. BASEN [Concomitant]
     Indication: DIABETES MELLITUS
     Route: 048
     Dates: start: 20061201

REACTIONS (2)
  - HEADACHE [None]
  - INTERVERTEBRAL DISC PROTRUSION [None]
